FAERS Safety Report 9521225 (Version 2)
Quarter: 2014Q1

REPORT INFORMATION
  Report Type: Spontaneous
  Country: US (occurrence: None)
  Receive Date: 20130305
  Receipt Date: 20140306
  Transmission Date: 20141002
  Serious: Yes (Other)
  Sender: FDA-Public Use
  Company Number: 163-21880-12092906

PATIENT
  Age: 63 Year
  Sex: Male

DRUGS (10)
  1. REVLIMID (LENALIDOMIDE) (25 MILLIGRAM, CAPSULES) [Suspect]
     Indication: PLASMA CELL MYELOMA
     Dosage: 25 MG, 21 IN 21 D, PO?
     Route: 048
     Dates: start: 20120911
  2. GAMMAGARD (IMMUNOGLOBULIN HUMAN NORMAL) [Concomitant]
  3. DOXIL (DOXORUBICIN HYDROCHLORIDE) [Concomitant]
  4. VELCADE (BORTEZOMIB) [Concomitant]
  5. ACYCLOVIR (ACICLOVIR) (ACICLOVIR) [Concomitant]
  6. BENADRYL (CLONALIN) [Concomitant]
  7. CALCITROL (CALCITROL) [Concomitant]
  8. DEXAMETHASONE (DEXAMETHASONE) [Concomitant]
  9. LORAZEPAM (LORAZEPAM) [Concomitant]
  10. PROCRIT [Concomitant]

REACTIONS (5)
  - Fatigue [None]
  - Neuropathy peripheral [None]
  - Peripheral coldness [None]
  - Muscle spasms [None]
  - Dry skin [None]
